FAERS Safety Report 7647854-3 (Version None)
Quarter: 2011Q3

REPORT INFORMATION
  Report Type: 
  Country: None (occurrence: None)
  Receive Date: 20110801
  Receipt Date: 20110720
  Transmission Date: 20111222
  Serious: Yes (Other)
  Sender: FDA-Public Use
  Company Number: US-AMGEN-USASP2011033060

PATIENT
  Age: 39 Year
  Sex: Female
  Weight: 76.19 kg

DRUGS (1)
  1. ENBREL [Suspect]
     Indication: RHEUMATOID ARTHRITIS
     Dosage: 50 MG, UNK
     Route: 058
     Dates: start: 20101112, end: 20110101

REACTIONS (8)
  - ABDOMINAL PAIN [None]
  - INJECTION SITE REACTION [None]
  - INJECTION SITE PAIN [None]
  - SKIN IRRITATION [None]
  - UPPER RESPIRATORY TRACT INFECTION [None]
  - ERYTHEMA [None]
  - CONTUSION [None]
  - ABDOMINAL HERNIA [None]
